FAERS Safety Report 6136057-X (Version None)
Quarter: 2009Q1

REPORT INFORMATION
  Report Type: 
  Country: None (occurrence: None)
  Receive Date: 20090325
  Receipt Date: 20090308
  Transmission Date: 20090719
  Serious: Yes (Other)
  Sender: FDA-Public Use
  Company Number: 2007S1006450

PATIENT
  Age: 75 Year
  Sex: Female

DRUGS (13)
  1. PHOSPHOSODA FLAVOR NOT SPECIFIED [Suspect]
     Indication: COLONOSCOPY
     Dosage: 90 ML; TOTAL; PO
     Dates: start: 20030911, end: 20030912
  2. HYDROCHLOROTHIAZIDE [Concomitant]
  3. HUMIBID [Concomitant]
  4. COZAAR [Concomitant]
  5. MOTRIN [Concomitant]
  6. AZMACORT [Concomitant]
  7. MAXAIR [Concomitant]
  8. PROZAC [Concomitant]
  9. PRILOSEC [Concomitant]
  10. SEREVENT [Concomitant]
  11. ASPIRIN [Concomitant]
  12. GLUCOSAMINE [Concomitant]
  13. CALCIUM [Concomitant]

REACTIONS (2)
  - RENAL FAILURE CHRONIC [None]
  - RENAL INJURY [None]
